FAERS Safety Report 9434561 (Version 1)
Quarter: 2013Q3

REPORT INFORMATION
  Report Type: Spontaneous
  Country: US (occurrence: None)
  Receive Date: 20130731
  Receipt Date: 20130731
  Transmission Date: 20140515
  Serious: No
  Sender: FDA-Public Use
  Company Number: None

PATIENT
  Age: 72 Year
  Sex: Female

DRUGS (1)
  1. VELCADE MILLENNIUM [Suspect]
     Indication: PLASMA CELL MYELOMA
     Dosage: 4 WKS ON/4 WKS OFF
     Dates: start: 2008

REACTIONS (5)
  - Diarrhoea [None]
  - Dyspepsia [None]
  - Constipation [None]
  - Injection site rash [None]
  - Fatigue [None]
